FAERS Safety Report 5713181-4 (Version None)
Quarter: 2008Q2

REPORT INFORMATION
  Report Type: 
  Country: None (occurrence: None)
  Receive Date: 20080422
  Receipt Date: 19861021
  Transmission Date: 20081010
  Serious: Yes (Death, Hospitalization, Other)
  Sender: FDA-Public Use
  Company Number: GB-ROCHE-7130

PATIENT
  Sex: Male
  Weight: 58 kg

DRUGS (9)
  1. GANCICLOVIR SODIUM [Suspect]
     Indication: CYTOMEGALOVIRUS COLITIS
     Route: 042
     Dates: start: 19860718, end: 19860719
  2. LANATOSIDE C [Concomitant]
     Indication: CARDIAC FAILURE
     Route: 048
     Dates: start: 19860702, end: 19860720
  3. LOPERAMIDE HCL [Concomitant]
     Route: 048
     Dates: start: 19860501, end: 19860720
  4. ISONIAZID [Concomitant]
     Indication: TUBERCULOSIS
     Route: 048
     Dates: start: 19860702, end: 19860720
  5. ETHAMBUTOL HYDROCHLORIDE [Concomitant]
     Indication: TUBERCULOSIS
     Route: 048
     Dates: start: 19860702, end: 19860720
  6. RIFAMYCIN [Concomitant]
     Indication: TUBERCULOSIS
     Dates: start: 19860702, end: 19860720
  7. CEFAZOLIN [Concomitant]
     Indication: INFECTION
     Dates: start: 19860702, end: 19860720
  8. AMIKACIN [Concomitant]
     Indication: INFECTION
     Dates: start: 19860702, end: 19860720
  9. AMPHOTERICIN B [Concomitant]
     Indication: INFECTION
     Route: 042
     Dates: start: 19860526, end: 19860720

REACTIONS (3)
  - DEATH [None]
  - RASH [None]
  - URTICARIA PIGMENTOSA [None]
